FAERS Safety Report 10131331 (Version 1)
Quarter: 2014Q2

REPORT INFORMATION
  Report Type: Spontaneous
  Country: US (occurrence: US)
  Receive Date: 20140428
  Receipt Date: 20140428
  Transmission Date: 20141212
  Serious: No
  Sender: FDA-Public Use
  Company Number: US-PFIZER INC-2014116631

PATIENT
  Sex: Female

DRUGS (3)
  1. CELEBREX [Suspect]
     Indication: PAIN IN EXTREMITY
     Dosage: UNK, 2X/DAY
  2. CELEBREX [Suspect]
     Indication: PAIN IN EXTREMITY
  3. ACCURETIC [Concomitant]
     Indication: HYPERTENSION
     Dosage: TWO TIMES A DAY

REACTIONS (2)
  - Chest pain [Recovered/Resolved]
  - Dyspepsia [Recovered/Resolved]
